FAERS Safety Report 15516333 (Version 1)
Quarter: 2018Q4

REPORT INFORMATION
  Report Type: Spontaneous
  Country: US (occurrence: US)
  Receive Date: 20181017
  Receipt Date: 20181017
  Transmission Date: 20190205
  Serious: No
  Sender: FDA-Public Use
  Company Number: US-PFIZER INC-2016570578

PATIENT
  Age: 38 Year
  Sex: Female

DRUGS (1)
  1. RELPAX [Suspect]
     Active Substance: ELETRIPTAN HYDROBROMIDE
     Dosage: UNK UNK, AS NEEDED (TAKE WITH MIGRAINE, CAN REPEAT 2 HR LATER PRN)

REACTIONS (1)
  - Migraine [Unknown]
